FAERS Safety Report 10923703 (Version 2)
Quarter: 2015Q2

REPORT INFORMATION
  Report Type: Spontaneous
  Country: US (occurrence: US)
  Receive Date: 20150318
  Receipt Date: 20150526
  Transmission Date: 20150821
  Serious: Yes (Other)
  Sender: FDA-Public Use
  Company Number: US-JNJFOC-20141202946

PATIENT
  Age: 35 Year
  Sex: Male

DRUGS (1)
  1. HALOPERIDOL DECANOATE. [Suspect]
     Active Substance: HALOPERIDOL DECANOATE
     Indication: PSYCHOTIC DISORDER
     Dosage: 100-250 MG
     Route: 030
     Dates: start: 201108, end: 201312

REACTIONS (2)
  - Tardive dyskinesia [Recovered/Resolved with Sequelae]
  - Drug effect incomplete [Unknown]

NARRATIVE: CASE EVENT DATE: 201406
